FAERS Safety Report 20443600 (Version 4)
Quarter: 2022Q2

REPORT INFORMATION
  Report Type: Report from Study
  Country: US (occurrence: US)
  Receive Date: 20220208
  Receipt Date: 20220622
  Transmission Date: 20220721
  Serious: Yes (Other)
  Sender: FDA-Public Use
  Company Number: US-NOVARTISPH-NVSC2022US026740

PATIENT
  Sex: Female

DRUGS (1)
  1. ENTRESTO [Suspect]
     Active Substance: SACUBITRIL\VALSARTAN
     Indication: Cardiac failure chronic
     Dosage: 49 MG/KG, BID (49/51 MG)
     Route: 048
     Dates: start: 20211006, end: 20220205

REACTIONS (4)
  - Cerebrovascular accident [Unknown]
  - Glaucoma [Unknown]
  - Cataract [Unknown]
  - Visual impairment [Unknown]
